FAERS Safety Report 8560306-1 (Version None)
Quarter: 2012Q3

REPORT INFORMATION
  Report Type: 
  Country: None (occurrence: None)
  Receive Date: 20120802
  Receipt Date: 20120719
  Transmission Date: 20120928
  Serious: Yes (Other)
  Sender: FDA-Public Use
  Company Number: FR-ELI_LILLY_AND_COMPANY-FR201204009957

PATIENT

DRUGS (2)
  1. ZYPREXA [Suspect]
     Dosage: UNK UNK, QD
     Route: 064
  2. ZYPREXA [Suspect]
     Dosage: UNK UNK, QD
     Route: 064

REACTIONS (3)
  - AUTISM [None]
  - SPEECH DISORDER DEVELOPMENTAL [None]
  - FOETAL EXPOSURE DURING PREGNANCY [None]
